FAERS Safety Report 8433096-0 (Version None)
Quarter: 2012Q2

REPORT INFORMATION
  Report Type: 
  Country: None (occurrence: None)
  Receive Date: 20120613
  Receipt Date: 20120604
  Transmission Date: 20120825
  Serious: Yes (Other)
  Sender: FDA-Public Use
  Company Number: US-ASTRAZENECA-2012SE05666

PATIENT
  Age: 83 Year
  Sex: Female

DRUGS (1)
  1. ARIMIDEX [Suspect]
     Route: 048

REACTIONS (4)
  - GASTRIC INFECTION [None]
  - ABDOMINAL DISCOMFORT [None]
  - NEOPLASM RECURRENCE [None]
  - KIDNEY INFECTION [None]
